FAERS Safety Report 23414371 (Version 3)
Quarter: 2024Q4

REPORT INFORMATION
  Report Type: Report from Study
  Country: US (occurrence: US)
  Receive Date: 20240118
  Receipt Date: 20241112
  Transmission Date: 20250115
  Serious: Yes (Hospitalization, Other)
  Sender: GLAXOSMITHKLINE
  Company Number: US-GLAXOSMITHKLINE-US2024005618

PATIENT

DRUGS (2)
  1. MOMELOTINIB [Suspect]
     Active Substance: MOMELOTINIB
     Indication: Myelofibrosis
     Dosage: 200 MG, QD
     Route: 048
  2. MOMELOTINIB [Suspect]
     Active Substance: MOMELOTINIB
     Indication: Muscle disorder

REACTIONS (3)
  - Pneumonia [Not Recovered/Not Resolved]
  - Influenza [Unknown]
  - Off label use [Unknown]
